FAERS Safety Report 5551555-5 (Version None)
Quarter: 2007Q4

REPORT INFORMATION
  Report Type: 
  Country: None (occurrence: None)
  Receive Date: 20071129
  Receipt Date: 20070531
  Transmission Date: 20080405
  Serious: Yes (Other)
  Sender: FDA-Public Use
  Company Number: US200601000889

PATIENT
  Age: 47 Year
  Sex: Female
  Weight: 111.6 kg

DRUGS (40)
  1. ZYPREXA [Suspect]
     Indication: ANXIETY DISORDER
     Dosage: SEE IMAGE
     Route: 048
     Dates: start: 20020529, end: 20020612
  2. ZYPREXA [Suspect]
     Indication: ANXIETY DISORDER
     Dosage: SEE IMAGE
     Route: 048
     Dates: start: 20020613, end: 20020713
  3. ZYPREXA [Suspect]
     Indication: ANXIETY DISORDER
     Dosage: SEE IMAGE
     Route: 048
     Dates: start: 20020905, end: 20030503
  4. ZYPREXA [Suspect]
     Indication: ANXIETY DISORDER
     Dosage: SEE IMAGE
     Route: 048
     Dates: start: 20030612, end: 20050920
  5. ZYPREXA [Suspect]
     Indication: ANXIETY DISORDER
     Dosage: SEE IMAGE
     Route: 048
     Dates: start: 20050921, end: 20051005
  6. ALPRAZOLAM [Concomitant]
  7. EFFEXOR [Concomitant]
  8. WELLBUTRIN                  (BUPROPION HYDROCHLORIDE) TABLET [Concomitant]
  9. LORAZEPAM [Concomitant]
  10. BUSPAR                  (BUSPIRONE HYDROCHLORIDE) TABLET [Concomitant]
  11. DILTIAZEM [Concomitant]
  12. TRIAMTERENE AND HYDROCHLOROTHIAZIDE [Concomitant]
  13. PROZAC [Concomitant]
  14. AMBIEN [Concomitant]
  15. ABILIF              (ARIPIPRAZOLE) TABLET [Concomitant]
  16. VYTORIN [Concomitant]
  17. PROPRANOLOL          (PROPRANOLOL) TABLET [Concomitant]
  18. TRAZODONE HCL [Concomitant]
  19. PRINIVIL [Concomitant]
  20. TOPAMAX [Concomitant]
  21. SEROQUEL [Concomitant]
  22. PAXIL [Concomitant]
  23. GEMFIBROZIL                  (GEMFIBROZIL) TABLET [Concomitant]
  24. LIPITOR [Concomitant]
  25. PREDNISONE          (PREDNISONE) TABLET [Concomitant]
  26. MYSOLINE [Concomitant]
  27. LAMICTAL [Concomitant]
  28. AVALIDE      (HYDROCHLOROTHIAZIDE, IRBESARTAN) TABLET [Concomitant]
  29. EPIPEN          (EPINEPHRINE) INJECTION [Concomitant]
  30. SERZONE             (NEFAZODONE HYDROCHLORIDE) TABLET [Concomitant]
  31. MIRCETTE [Concomitant]
  32. METHYLPREDNISOLONE [Concomitant]
  33. ESTRADIOL [Concomitant]
  34. ELAVIL [Concomitant]
  35. COZAAR [Concomitant]
  36. PHENOBARBITAL              (PHENOBARBITAL) TABLET [Concomitant]
  37. TRICOR                  (FENOFIBRATE) TABLET [Concomitant]
  38. DIOVAN                   (HYDROCHLOROTHIAZIDE, VALSARTAN) TABLET [Concomitant]
  39. BENICAR [Concomitant]
  40. ALLEGRA [Concomitant]

REACTIONS (7)
  - DYSARTHRIA [None]
  - FATIGUE [None]
  - JOINT SWELLING [None]
  - OVERDOSE [None]
  - THOUGHT BLOCKING [None]
  - TYPE 2 DIABETES MELLITUS [None]
  - WEIGHT INCREASED [None]
